FAERS Safety Report 25431073 (Version 1)
Quarter: 2025Q2

REPORT INFORMATION
  Report Type: Report from Study
  Country: US (occurrence: US)
  Receive Date: 20250612
  Receipt Date: 20250612
  Transmission Date: 20250717
  Serious: Yes (Other)
  Sender: JOHNSON AND JOHNSON
  Company Number: US-JNJFOC-20250608060

PATIENT
  Age: 53 Year
  Sex: Female

DRUGS (2)
  1. SPRAVATO [Suspect]
     Active Substance: ESKETAMINE
     Indication: Depression
     Dosage: ^84 MG, 5 TOTAL DOSES^
     Route: 045
     Dates: start: 20250516, end: 20250602
  2. SPRAVATO [Suspect]
     Active Substance: ESKETAMINE
     Dosage: ^56 MG, 1 TOTAL DOSE^
     Route: 045

REACTIONS (3)
  - Social anxiety disorder [Not Recovered/Not Resolved]
  - Burning sensation [Recovered/Resolved]
  - Crying [Recovered/Resolved]

NARRATIVE: CASE EVENT DATE: 20250516
